FAERS Safety Report 17425338 (Version 1)
Quarter: 2020Q1

REPORT INFORMATION
  Report Type: Spontaneous
  Country: FR (occurrence: FR)
  Receive Date: 20200217
  Receipt Date: 20200217
  Transmission Date: 20200409
  Serious: Yes (Life-Threatening, Other)
  Sender: FDA-Public Use
  Company Number: FR-SA-2020SA039589

PATIENT
  Age: 91 Year
  Sex: Male

DRUGS (2)
  1. ETHAMBUTOL [Suspect]
     Active Substance: ETHAMBUTOL HYDROCHLORIDE
     Indication: ORCHITIS
     Dosage: 2 DF, QD
     Route: 048
     Dates: start: 20191122, end: 20200117
  2. RIFINAH [Suspect]
     Active Substance: ISONIAZID\RIFAMPIN
     Indication: ORCHITIS
     Dosage: 2 DF, QD
     Route: 048
     Dates: start: 20191122, end: 20200117

REACTIONS (5)
  - Hepatocellular injury [Recovering/Resolving]
  - Cholestasis [Recovering/Resolving]
  - Tooth loss [Not Recovered/Not Resolved]
  - Neutropenia [Not Recovered/Not Resolved]
  - Teeth brittle [Not Recovered/Not Resolved]

NARRATIVE: CASE EVENT DATE: 20191230
